FAERS Safety Report 7876380-1 (Version None)
Quarter: 2011Q4

REPORT INFORMATION
  Report Type: 
  Country: None (occurrence: None)
  Receive Date: 20111031
  Receipt Date: 20111024
  Transmission Date: 20120403
  Serious: Yes (Other)
  Sender: FDA-Public Use
  Company Number: SK-UCBSA-044296

PATIENT
  Age: 61 Year
  Sex: Female

DRUGS (2)
  1. CIMZIA [Suspect]
     Route: 058
  2. CIMZIA [Suspect]
     Dosage: CLINICAL TRIAL 2005-2010 AND 2011
     Route: 058

REACTIONS (1)
  - MYCOBACTERIUM TUBERCULOSIS COMPLEX TEST POSITIVE [None]
